FAERS Safety Report 13625187 (Version 2)
Quarter: 2018Q1

REPORT INFORMATION
  Report Type: Spontaneous
  Country: US (occurrence: US)
  Receive Date: 20170607
  Receipt Date: 20180118
  Transmission Date: 20180508
  Serious: No
  Sender: FDA-Public Use
  Company Number: US-JNJFOC-20170602168

PATIENT
  Sex: Male

DRUGS (6)
  1. RISPERDAL [Suspect]
     Active Substance: RISPERIDONE
     Indication: SCHIZOAFFECTIVE DISORDER
     Dosage: VARYING DOSES AND FREQUENCY OF 1 MG, 1.5 MG, 3 MG AND 3.5 MG.
     Route: 048
     Dates: start: 20010316, end: 20030425
  2. RISPERDAL [Suspect]
     Active Substance: RISPERIDONE
     Indication: BIPOLAR DISORDER
     Dosage: VARYING DOSES AND FREQUENCY OF 1 MG, 1.5 MG, 3 MG AND 3.5 MG.
     Route: 048
     Dates: start: 20010316, end: 20030425
  3. RISPERDAL [Suspect]
     Active Substance: RISPERIDONE
     Indication: BIPOLAR DISORDER
     Route: 048
     Dates: start: 20010102, end: 2001
  4. RISPERDAL [Suspect]
     Active Substance: RISPERIDONE
     Indication: ABNORMAL BEHAVIOUR
     Dosage: VARYING DOSES AND FREQUENCY OF 1 MG, 1.5 MG, 3 MG AND 3.5 MG.
     Route: 048
     Dates: start: 20010316, end: 20030425
  5. RISPERDAL [Suspect]
     Active Substance: RISPERIDONE
     Indication: SCHIZOAFFECTIVE DISORDER
     Route: 048
     Dates: start: 20010102, end: 2001
  6. RISPERDAL [Suspect]
     Active Substance: RISPERIDONE
     Indication: ABNORMAL BEHAVIOUR
     Route: 048
     Dates: start: 20010102, end: 2001

REACTIONS (2)
  - Emotional disorder [Unknown]
  - Gynaecomastia [Unknown]
